FAERS Safety Report 6701930-8 (Version None)
Quarter: 2010Q2

REPORT INFORMATION
  Report Type: 
  Country: None (occurrence: None)
  Receive Date: 20100429
  Receipt Date: 20100421
  Transmission Date: 20101027
  Serious: Yes (Disabling)
  Sender: FDA-Public Use
  Company Number: GB-ROCHE-626085

PATIENT
  Sex: Female
  Weight: 68 kg

DRUGS (9)
  1. BEVACIZUMAB [Suspect]
     Dosage: LAST DOSE PRIOR TO SAE WAS ON 20/02/09.
     Route: 042
     Dates: start: 20080708
  2. CARBOPLATIN [Suspect]
     Dosage: DATE OF MOST RECENT ADMINISTRATION: 28 OCTOBER 2008.
     Route: 042
     Dates: start: 20080708
  3. PACLITAXEL [Suspect]
     Dosage: FORM: INFUSION (AS PER PROTOCOL), DATE OF MOST RECENT ADMINISTRATION: 28 OCTOBER 2008.
     Route: 042
     Dates: start: 20080708
  4. IBRUFEN [Concomitant]
     Dates: start: 20090312
  5. OMEPRAZOLE [Concomitant]
     Dates: start: 20090312
  6. SERTRALINE HCL [Concomitant]
  7. CO-DYDRAMOL [Concomitant]
     Dosage: TDD: 10/500 MG.
     Dates: start: 20090312
  8. PARACETAMOL [Concomitant]
     Route: 048
     Dates: start: 20080711
  9. IBUPROFEN [Concomitant]
     Route: 048
     Dates: start: 20090214

REACTIONS (2)
  - ARTHRALGIA [None]
  - MUSCULOSKELETAL PAIN [None]
